FAERS Safety Report 6833663-1 (Version None)
Quarter: 2010Q3

REPORT INFORMATION
  Report Type: 
  Country: None (occurrence: None)
  Receive Date: 20100712
  Receipt Date: 20070514
  Transmission Date: 20110219
  Serious: No
  Sender: FDA-Public Use
  Company Number: US-PFIZER INC-2007026566

PATIENT
  Sex: Female
  Weight: 88 kg

DRUGS (13)
  1. CHANTIX [Suspect]
     Indication: SMOKING CESSATION THERAPY
     Route: 048
     Dates: start: 20070319
  2. EFFEXOR [Concomitant]
     Indication: BIPOLAR DISORDER
     Dates: start: 20030101
  3. TRILEPTAL [Concomitant]
     Indication: AFFECTIVE DISORDER
     Dates: start: 20030101
  4. KLONOPIN [Concomitant]
     Indication: ANXIETY
     Dates: start: 20030101
  5. TRAZODONE [Concomitant]
     Indication: SLEEP DISORDER
     Dates: start: 20030101
  6. MOTRIN [Concomitant]
     Indication: MIGRAINE
  7. COMPAZINE [Concomitant]
     Indication: NAUSEA
  8. FIORICET [Concomitant]
     Indication: MIGRAINE
  9. OMEPRAZOLE [Concomitant]
  10. OXYCODONE HCL [Concomitant]
     Indication: BACK PAIN
  11. ZANAFLEX [Concomitant]
     Indication: MUSCLE TIGHTNESS
  12. INDERAL [Concomitant]
     Indication: MIGRAINE
  13. MULTI-VITAMINS [Concomitant]

REACTIONS (3)
  - DIZZINESS [None]
  - NAUSEA [None]
  - TOOTH EXTRACTION [None]
